FAERS Safety Report 16326037 (Version 2)
Quarter: 2019Q4

REPORT INFORMATION
  Report Type: Report from Study
  Country: None (occurrence: US)
  Receive Date: 20190517
  Receipt Date: 20191231
  Transmission Date: 20200122
  Serious: Yes (Other)
  Sender: FDA-Public Use
  Company Number: US-ABBVIE-19K-163-2680445-00

PATIENT
  Age: 73 Year
  Sex: Male

DRUGS (3)
  1. HUMIRA [Suspect]
     Active Substance: ADALIMUMAB
     Route: 058
     Dates: start: 20190312, end: 201906
  2. HUMIRA [Suspect]
     Active Substance: ADALIMUMAB
     Indication: COLITIS ULCERATIVE
     Dosage: DAY 1
     Route: 058
     Dates: start: 20190211, end: 20190211
  3. HUMIRA [Suspect]
     Active Substance: ADALIMUMAB
     Dosage: DAY 2
     Route: 058
     Dates: start: 20190223, end: 20190223

REACTIONS (17)
  - Abdominal pain [Not Recovered/Not Resolved]
  - Injection site swelling [Recovered/Resolved]
  - Frequent bowel movements [Recovering/Resolving]
  - Drug ineffective [Unknown]
  - Systemic lupus erythematosus [Unknown]
  - Psoriasis [Unknown]
  - Vision blurred [Unknown]
  - Diarrhoea haemorrhagic [Recovered/Resolved]
  - Injection site erythema [Recovered/Resolved]
  - Conjunctivitis [Unknown]
  - Diarrhoea [Not Recovered/Not Resolved]
  - Abnormal faeces [Unknown]
  - Constipation [Recovered/Resolved]
  - Ocular hyperaemia [Unknown]
  - Rectal haemorrhage [Unknown]
  - Malaise [Not Recovered/Not Resolved]
  - Flatulence [Not Recovered/Not Resolved]

NARRATIVE: CASE EVENT DATE: 2019
